FAERS Safety Report 8746181 (Version 2)
Quarter: 2013Q1

REPORT INFORMATION
  Report Type: Spontaneous
  Country: BR (occurrence: BR)
  Receive Date: 20120827
  Receipt Date: 20130117
  Transmission Date: 20140127
  Serious: Yes (Life-Threatening)
  Sender: FDA-Public Use
  Company Number: PHHY2012BR073194

PATIENT
  Sex: Female

DRUGS (5)
  1. DIOVAN AMLO FIX [Suspect]
     Indication: HYPERTENSION
     Dosage: 1 (320 MG VALS AND 10 MG AMLO), DAILY
     Route: 062
  2. ATENOLOL [Concomitant]
     Indication: HYPERTENSION
     Dosage: 2, DF, DAILY
     Route: 048
  3. AGLITIL [Concomitant]
     Dosage: UNK
  4. AGLUCOSE [Concomitant]
     Indication: DIABETES MELLITUS
     Dosage: UNK
  5. GLIMEPIRIDE [Concomitant]
     Indication: DIABETES MELLITUS
     Dosage: 2 DF, DAILY
     Route: 048
     Dates: start: 2012

REACTIONS (5)
  - Coma [Not Recovered/Not Resolved]
  - Headache [Not Recovered/Not Resolved]
  - Blood potassium increased [Recovered/Resolved]
  - Blood pressure inadequately controlled [Not Recovered/Not Resolved]
  - Blood glucose increased [Not Recovered/Not Resolved]
